FAERS Safety Report 11066238 (Version 2)
Quarter: 2015Q2

REPORT INFORMATION
  Report Type: Spontaneous
  Country: US (occurrence: US)
  Receive Date: 20150425
  Receipt Date: 20150525
  Transmission Date: 20150821
  Serious: No
  Sender: FDA-Public Use
  Company Number: US-JNJFOC-20150318308

PATIENT
  Age: 21 Year
  Sex: Male

DRUGS (1)
  1. SIMPONI [Suspect]
     Active Substance: GOLIMUMAB
     Indication: CROHN^S DISEASE
     Dosage: 100MG STARTER DOSE, THEN 2 WEEKS, THEN ANOTHER 2 WEEKS, THEN MONTHLY.
     Route: 058
     Dates: start: 20150319

REACTIONS (3)
  - Drug dose omission [Not Recovered/Not Resolved]
  - Product use issue [Unknown]
  - Device malfunction [Unknown]

NARRATIVE: CASE EVENT DATE: 20150319
